FAERS Safety Report 22191625 (Version 1)
Quarter: 2023Q2

REPORT INFORMATION
  Report Type: Spontaneous
  Country: US (occurrence: US)
  Receive Date: 20230410
  Receipt Date: 20230410
  Transmission Date: 20230722
  Serious: No
  Sender: FDA-Public Use
  Company Number: US-BAYER-2023A046888

PATIENT
  Sex: Female

DRUGS (1)
  1. MIRALAX [Suspect]
     Active Substance: POLYETHYLENE GLYCOL 3350
     Indication: Gastrointestinal disorder
     Dosage: ONE SACHET WITH ORANGE JUICE
     Route: 048
     Dates: start: 202304

REACTIONS (2)
  - Nausea [Unknown]
  - Mydriasis [Unknown]

NARRATIVE: CASE EVENT DATE: 20230401
